FAERS Safety Report 12506759 (Version 1)
Quarter: 2016Q2

REPORT INFORMATION
  Report Type: Spontaneous
  Country: US (occurrence: US)
  Receive Date: 20160628
  Receipt Date: 20160628
  Transmission Date: 20160815
  Serious: No
  Sender: FDA-Public Use
  Company Number: US-BRACCO-012157

PATIENT
  Age: 46 Year
  Sex: Female

DRUGS (1)
  1. PROHANCE [Suspect]
     Active Substance: GADOTERIDOL
     Indication: NUCLEAR MAGNETIC RESONANCE IMAGING BREAST
     Route: 042
     Dates: start: 20150518, end: 20150518

REACTIONS (2)
  - Sensation of foreign body [Unknown]
  - Nausea [Unknown]

NARRATIVE: CASE EVENT DATE: 20150518
